FAERS Safety Report 13701346 (Version 1)
Quarter: 2017Q2

REPORT INFORMATION
  Report Type: Spontaneous
  Country: US (occurrence: US)
  Receive Date: 20170628
  Receipt Date: 20170628
  Transmission Date: 20170830
  Serious: No
  Sender: FDA-Public Use
  Company Number: None

PATIENT
  Age: 2 Year

DRUGS (1)
  1. MIRALAX [Suspect]
     Active Substance: POLYETHYLENE GLYCOL 3350
     Indication: CONSTIPATION
     Dosage: ?          OTHER STRENGTH:GM;?
     Route: 048
     Dates: end: 20170627

REACTIONS (4)
  - Aggression [None]
  - Psychotic disorder [None]
  - Emotional disorder [None]
  - Obsessive thoughts [None]

NARRATIVE: CASE EVENT DATE: 20170627
